FAERS Safety Report 5199664-7 (Version None)
Quarter: 2007Q1

REPORT INFORMATION
  Report Type: 
  Country: None (occurrence: None)
  Receive Date: 20070103
  Receipt Date: 20070103
  Transmission Date: 20070707
  Serious: Yes (Hospitalization)
  Sender: FDA-Public Use
  Company Number: None

PATIENT
  Sex: Female

DRUGS (1)
  1. ENBREL [Suspect]
     Dosage: 50MG  QW  SQ
     Route: 058
     Dates: start: 20061023, end: 20061023

REACTIONS (4)
  - HAEMOGLOBIN DECREASED [None]
  - HAEMORRHAGE [None]
  - PLATELET COUNT DECREASED [None]
  - RENAL FAILURE [None]
